FAERS Safety Report 15054758 (Version 2)
Quarter: 2018Q3

REPORT INFORMATION
  Report Type: Report from Study
  Country: US (occurrence: US)
  Receive Date: 20180622
  Receipt Date: 20180904
  Transmission Date: 20181010
  Serious: Yes (Other)
  Sender: FDA-Public Use
  Company Number: US-TESARO, INC-US-2018TSO03051

PATIENT
  Sex: Female

DRUGS (2)
  1. ZEJULA [Suspect]
     Active Substance: NIRAPARIB
     Indication: BREAST NEOPLASM
     Dosage: 200 MG, UNK
     Route: 048
  2. ZEJULA [Suspect]
     Active Substance: NIRAPARIB
     Indication: OVARIAN CANCER
     Dosage: 200 MG, QD
     Route: 048
     Dates: start: 20180208

REACTIONS (4)
  - Retinal tear [Not Recovered/Not Resolved]
  - Photopsia [Not Recovered/Not Resolved]
  - Eye disorder [Not Recovered/Not Resolved]
  - Retinal detachment [Not Recovered/Not Resolved]
